FAERS Safety Report 17050031 (Version 1)
Quarter: 2019Q4

REPORT INFORMATION
  Report Type: Spontaneous
  Country: US (occurrence: US)
  Receive Date: 20191119
  Receipt Date: 20191119
  Transmission Date: 20200122
  Serious: Yes (Other)
  Sender: FDA-Public Use
  Company Number: US-HORIZON-DUE-0626-2019

PATIENT
  Age: 61 Year
  Sex: Male

DRUGS (1)
  1. DUEXIS [Suspect]
     Active Substance: FAMOTIDINE\IBUPROFEN
     Indication: SPINAL PAIN

REACTIONS (5)
  - Pain [Unknown]
  - Off label use [Unknown]
  - Spinal operation [Unknown]
  - Insurance issue [Unknown]
  - Scar [Unknown]
